FAERS Safety Report 10544505 (Version 1)
Quarter: 2014Q4

REPORT INFORMATION
  Report Type: Report from Study
  Country: NL (occurrence: NL)
  Receive Date: 20141027
  Receipt Date: 20141027
  Transmission Date: 20150529
  Serious: Yes (Death)
  Sender: FDA-Public Use
  Company Number: NL-AMGEN-NLDSL2014081740

PATIENT
  Age: 74 Year
  Sex: Female
  Weight: 72 kg

DRUGS (1)
  1. NPLATE [Suspect]
     Active Substance: ROMIPLOSTIM
     Indication: IMMUNE THROMBOCYTOPENIC PURPURA
     Dosage: 3 MUG/KG, QWK
     Route: 058
     Dates: start: 20140918

REACTIONS (1)
  - Death [Fatal]

NARRATIVE: CASE EVENT DATE: 20141022
